FAERS Safety Report 10192537 (Version 2)
Quarter: 2014Q2

REPORT INFORMATION
  Report Type: Report from Study
  Country: CA (occurrence: CA)
  Receive Date: 20140523
  Receipt Date: 20140523
  Transmission Date: 20141212
  Serious: Yes (Other)
  Sender: FDA-Public Use
  Company Number: CA-JNJFOC-20140304493

PATIENT
  Age: 49 Year
  Sex: Male
  Weight: 98 kg

DRUGS (6)
  1. REMICADE [Suspect]
     Indication: CROHN^S DISEASE
     Dosage: 38TH INFUSION
     Route: 042
     Dates: start: 20140310
  2. REMICADE [Suspect]
     Indication: CROHN^S DISEASE
     Dosage: 37TH INFUSION
     Route: 042
     Dates: start: 20140204
  3. REMICADE [Suspect]
     Indication: CROHN^S DISEASE
     Route: 042
     Dates: start: 2010
  4. REMICADE [Suspect]
     Indication: CROHN^S DISEASE
     Route: 042
     Dates: start: 2009
  5. IMURAN [Concomitant]
     Route: 048
  6. ADVAIR [Concomitant]
     Route: 065

REACTIONS (4)
  - Lung disorder [Not Recovered/Not Resolved]
  - Sinus disorder [Not Recovered/Not Resolved]
  - Upper respiratory tract infection [Recovered/Resolved]
  - Chest pain [Unknown]
